FAERS Safety Report 20508946 (Version 2)
Quarter: 2022Q1

REPORT INFORMATION
  Report Type: Spontaneous
  Country: US (occurrence: US)
  Receive Date: 20220223
  Receipt Date: 20220321
  Transmission Date: 20220423
  Serious: Yes (Other)
  Sender: FDA-Public Use
  Company Number: US-PFIZER INC-202200286517

PATIENT
  Age: 66 Year
  Sex: Female
  Weight: 63.492 kg

DRUGS (1)
  1. PAXLOVID [Suspect]
     Active Substance: NIRMATRELVIR\RITONAVIR
     Indication: COVID-19
     Dosage: 3 TABLETS IN AM; 3 TABLETS IN PM
     Route: 048
     Dates: start: 20220131, end: 20220205

REACTIONS (4)
  - Urinary tract infection [Recovered/Resolved]
  - White blood cell count increased [Unknown]
  - Pharyngeal ulceration [Recovered/Resolved]
  - Mouth ulceration [Recovered/Resolved]

NARRATIVE: CASE EVENT DATE: 20220201
